FAERS Safety Report 5499863-0 (Version None)
Quarter: 2007Q4

REPORT INFORMATION
  Report Type: 
  Country: None (occurrence: None)
  Receive Date: 20071026
  Receipt Date: 20071016
  Transmission Date: 20080405
  Serious: Yes (Other)
  Sender: FDA-Public Use
  Company Number: US-PFIZER INC-2007086612

PATIENT
  Sex: Female
  Weight: 68 kg

DRUGS (1)
  1. LIPITOR [Suspect]
     Indication: BLOOD CHOLESTEROL INCREASED
     Dates: start: 20070622, end: 20070816

REACTIONS (4)
  - ANTINUCLEAR ANTIBODY POSITIVE [None]
  - BEDRIDDEN [None]
  - MUSCLE SPASMS [None]
  - RHEUMATOID ARTHRITIS [None]
